FAERS Safety Report 5787205-2 (Version None)
Quarter: 2008Q2

REPORT INFORMATION
  Report Type: 
  Country: None (occurrence: None)
  Receive Date: 20080625
  Receipt Date: 20070821
  Transmission Date: 20081010
  Serious: No
  Sender: FDA-Public Use
  Company Number: US-ASTRAZENECA-2007UW20064

PATIENT
  Age: 91 Year
  Sex: Female
  Weight: 75.7 kg

DRUGS (8)
  1. PULMICORT-100 [Suspect]
     Indication: COUGH
     Route: 055
     Dates: start: 20070801
  2. PULMICORT-100 [Suspect]
     Indication: RHINORRHOEA
     Route: 055
     Dates: start: 20070801
  3. PULMICORT-100 [Suspect]
     Indication: DYSPNOEA
     Route: 055
     Dates: start: 20070801
  4. TOPROL-XL [Concomitant]
     Route: 048
  5. GLIPIZIDE [Concomitant]
  6. VYTORIN [Concomitant]
  7. XANAX [Concomitant]
  8. ACCUPRIL [Concomitant]

REACTIONS (3)
  - PRURITUS [None]
  - SWELLING FACE [None]
  - THROAT IRRITATION [None]
